FAERS Safety Report 5920556-7 (Version None)
Quarter: 2008Q4

REPORT INFORMATION
  Report Type: 
  Country: None (occurrence: None)
  Receive Date: 20081015
  Receipt Date: 20081015
  Transmission Date: 20090506
  Serious: Yes (Hospitalization)
  Sender: FDA-Public Use
  Company Number: None

PATIENT
  Sex: Male
  Weight: 95 kg

DRUGS (10)
  1. CYTARABINE [Suspect]
     Dosage: 4380 MG
     Dates: start: 20080925
  2. DEXAMETHASONE [Suspect]
     Dosage: 100 MG
  3. ETOPOSIDE [Suspect]
     Dosage: 340 MG
  4. G-CSF (FILGRASTIM, AMGEN) [Suspect]
     Dosage: 3600 MCG
  5. IFOSFAMIDE [Suspect]
     Dosage: 8750 MG
  6. LEUCOVORIN CALCIUM [Suspect]
     Dosage: 175 MG
  7. MESNA [Suspect]
     Dosage: 6000 MG
  8. METHOTREXATE [Suspect]
     Dosage: 3270 MG
  9. RITUXIMAB (MOAB C2B8 ANTI CD20, CHIMERIC) [Suspect]
     Dosage: 1600 MG
  10. VINCRISTINE SULFATE [Suspect]
     Dosage: 2 MG

REACTIONS (29)
  - ABDOMINAL DISCOMFORT [None]
  - ACIDOSIS [None]
  - ALANINE AMINOTRANSFERASE INCREASED [None]
  - ARTHRALGIA [None]
  - ASPARTATE AMINOTRANSFERASE INCREASED [None]
  - ATELECTASIS [None]
  - BACTERIA URINE IDENTIFIED [None]
  - BLOOD BILIRUBIN INCREASED [None]
  - CHOLECYSTITIS [None]
  - CHOLELITHIASIS [None]
  - CLOSTRIDIAL INFECTION [None]
  - CONFUSIONAL STATE [None]
  - DELUSION [None]
  - DIARRHOEA [None]
  - GLUCOSE URINE PRESENT [None]
  - HAEMATURIA [None]
  - HYPERTENSION [None]
  - HYPOTENSION [None]
  - HYPOXIA [None]
  - MUCOSAL INFLAMMATION [None]
  - NAUSEA [None]
  - NUCLEAR MAGNETIC RESONANCE IMAGING BRAIN ABNORMAL [None]
  - ODYNOPHAGIA [None]
  - PAIN IN EXTREMITY [None]
  - PYELOCALIECTASIS [None]
  - PYREXIA [None]
  - RESPIRATORY RATE INCREASED [None]
  - URINE KETONE BODY PRESENT [None]
  - URINE LEUKOCYTE ESTERASE POSITIVE [None]
